FAERS Safety Report 8285108-5 (Version None)
Quarter: 2012Q2

REPORT INFORMATION
  Report Type: 
  Country: None (occurrence: None)
  Receive Date: 20120413
  Receipt Date: 20120125
  Transmission Date: 20120825
  Serious: No
  Sender: FDA-Public Use
  Company Number: US-ASTRAZENECA-2010SE00260

PATIENT
  Age: 49 Year
  Sex: Female

DRUGS (1)
  1. NEXIUM [Suspect]
     Route: 048

REACTIONS (5)
  - ROAD TRAFFIC ACCIDENT [None]
  - BACK INJURY [None]
  - FALL [None]
  - HYPERTENSION [None]
  - BLOOD CHOLESTEROL INCREASED [None]
